FAERS Safety Report 13412352 (Version 2)
Quarter: 2017Q4

REPORT INFORMATION
  Report Type: Spontaneous
  Country: US (occurrence: US)
  Receive Date: 20170406
  Receipt Date: 20171123
  Transmission Date: 20180320
  Serious: No
  Sender: FDA-Public Use
  Company Number: US-JNJFOC-20170315467

PATIENT
  Age: 23 Year
  Sex: Male

DRUGS (8)
  1. INVEGA [Suspect]
     Active Substance: PALIPERIDONE
     Indication: HALLUCINATION
     Route: 048
     Dates: start: 20090220
  2. RISPERDAL [Suspect]
     Active Substance: RISPERIDONE
     Indication: HALLUCINATION
     Dosage: VARYING DOSE OF 0.5 MG, 1.0 MG TO 4.0 MG
     Route: 048
     Dates: start: 20070525, end: 20120823
  3. RISPERIDONE. [Suspect]
     Active Substance: RISPERIDONE
     Indication: HALLUCINATION
     Dosage: VARYING DOSE OF 2.0 MG, 3.0 MG TO 4.0 MG TO 5.0 MG
     Route: 048
     Dates: start: 20110930, end: 20130723
  4. INVEGA [Suspect]
     Active Substance: PALIPERIDONE
     Indication: HALLUCINATION
     Dosage: VARYING DOSE OF 3.0 MG TO 6.0 MG
     Route: 048
     Dates: start: 20070607, end: 20090220
  5. RISPERDAL [Suspect]
     Active Substance: RISPERIDONE
     Indication: HALLUCINATION
     Route: 048
     Dates: start: 20110923, end: 20130723
  6. INVEGA [Suspect]
     Active Substance: PALIPERIDONE
     Indication: HALLUCINATION
     Route: 048
     Dates: start: 20090627
  7. RISPERDAL [Suspect]
     Active Substance: RISPERIDONE
     Indication: HALLUCINATION
     Route: 048
     Dates: start: 20070525, end: 20070607
  8. RISPERDAL [Suspect]
     Active Substance: RISPERIDONE
     Indication: HALLUCINATION
     Route: 048
     Dates: start: 20090217, end: 20090220

REACTIONS (4)
  - Emotional disorder [Unknown]
  - Gynaecomastia [Unknown]
  - Product use in unapproved indication [Unknown]
  - Off label use [Unknown]

NARRATIVE: CASE EVENT DATE: 20070525
